FAERS Safety Report 6128605-0 (Version None)
Quarter: 2009Q1

REPORT INFORMATION
  Report Type: 
  Country: None (occurrence: None)
  Receive Date: 20090323
  Receipt Date: 20090313
  Transmission Date: 20090719
  Serious: No
  Sender: FDA-Public Use
  Company Number: US-B.I. PHARMACEUTICALS,INC./RIDGEFIELD-2009-BP-03235BP

PATIENT
  Sex: Female

DRUGS (3)
  1. ZANTAC 150 [Suspect]
     Indication: GASTROOESOPHAGEAL REFLUX DISEASE
     Dosage: 150MG
     Route: 048
     Dates: start: 20090313, end: 20090313
  2. ATENOLOL [Concomitant]
     Indication: HYPERTENSION
  3. ASPIRIN [Concomitant]
     Dosage: 325MG
     Route: 048

REACTIONS (1)
  - DYSPEPSIA [None]
